FAERS Safety Report 9966957 (Version 2)
Quarter: 2014Q2

REPORT INFORMATION
  Report Type: Report from Study
  Country: JP (occurrence: JP)
  Receive Date: 20140305
  Receipt Date: 20140403
  Transmission Date: 20141212
  Serious: Yes (Hospitalization, Other)
  Sender: FDA-Public Use
  Company Number: JP-TAKEDA-2014TJP002230

PATIENT
  Age: 81 Year
  Sex: Male
  Weight: 57 kg

DRUGS (6)
  1. ALOGLIPTIN [Suspect]
     Indication: TYPE 2 DIABETES MELLITUS
     Dosage: 25 MG, QD
     Route: 048
     Dates: start: 20120418
  2. ACTOS TABLETS 30 [Suspect]
     Indication: TYPE 2 DIABETES MELLITUS
     Dosage: 15 MG, 1 DAYS
     Route: 048
     Dates: start: 20110708
  3. MICARDIS [Concomitant]
     Dosage: 40 MG, 1 DAYS
     Route: 048
     Dates: start: 20120222
  4. CRESTOR [Concomitant]
     Indication: DYSLIPIDAEMIA
     Dosage: 2.5 MG, 1 DAYS
     Route: 048
     Dates: start: 20120802
  5. EPADEL                             /01682402/ [Concomitant]
     Indication: DYSLIPIDAEMIA
     Dosage: 1200 MG, 1 DAYS
     Route: 048
     Dates: start: 20120802
  6. PLAVIX [Concomitant]
     Indication: DYSLIPIDAEMIA
     Dosage: 75 MG, 1 DAYS
     Route: 048
     Dates: start: 20120905

REACTIONS (1)
  - Cerebral infarction [Recovering/Resolving]
